FAERS Safety Report 20136011 (Version 1)
Quarter: 2021Q4

REPORT INFORMATION
  Report Type: Spontaneous
  Country: US (occurrence: None)
  Receive Date: 20211201
  Receipt Date: 20211201
  Transmission Date: 20220303
  Serious: Yes (Hospitalization)
  Sender: FDA-Public Use
  Company Number: None

PATIENT
  Age: 34 Year
  Sex: Male
  Weight: 118 kg

DRUGS (1)
  1. CASIRIVIMAB\IMDEVIMAB [Suspect]
     Active Substance: CASIRIVIMAB\IMDEVIMAB
     Dates: start: 20210909, end: 20210909

REACTIONS (11)
  - Infusion related reaction [None]
  - Nausea [None]
  - Vomiting [None]
  - Tachycardia [None]
  - Malaise [None]
  - Headache [None]
  - Oxygen saturation decreased [None]
  - Tremor [None]
  - Crying [None]
  - Condition aggravated [None]
  - Blood pressure increased [None]

NARRATIVE: CASE EVENT DATE: 20210909
